FAERS Safety Report 7229960-0 (Version None)
Quarter: 2011Q1

REPORT INFORMATION
  Report Type: 
  Country: None (occurrence: None)
  Receive Date: 20110117
  Receipt Date: 20110112
  Transmission Date: 20110831
  Serious: Yes (Other)
  Sender: FDA-Public Use
  Company Number: IT-ELI_LILLY_AND_COMPANY-IT201009002092

PATIENT
  Sex: Male

DRUGS (8)
  1. PROTAPHANE [Concomitant]
     Dates: start: 20090809, end: 20100810
  2. PANCREASE [Concomitant]
  3. NORVASC [Concomitant]
     Dosage: 5 MG, UNK
  4. OMEPRAZOLE [Concomitant]
  5. XELODA [Concomitant]
  6. TRIATEC [Concomitant]
     Dosage: 5 MG, UNK
  7. HUMALOG [Suspect]
     Dates: start: 20090809, end: 20100810
  8. CARDURA [Concomitant]
     Dosage: 4 MG, UNK

REACTIONS (3)
  - SPLENECTOMY [None]
  - PANCREATIC NEOPLASM [None]
  - HYPOGLYCAEMIA [None]
